FAERS Safety Report 6818985-2 (Version None)
Quarter: 2010Q3

REPORT INFORMATION
  Report Type: 
  Country: None (occurrence: None)
  Receive Date: 20100707
  Receipt Date: 20100624
  Transmission Date: 20110219
  Serious: Yes (Hospitalization, Other)
  Sender: FDA-Public Use
  Company Number: US-CELGENEUS-163-20785-10051904

PATIENT
  Sex: Male

DRUGS (3)
  1. THALOMID [Suspect]
     Indication: MULTIPLE MYELOMA
     Route: 048
     Dates: start: 20100305, end: 20100310
  2. THALOMID [Suspect]
     Dosage: 100MG-200MG
     Route: 048
     Dates: start: 20090201
  3. THALOMID [Suspect]
     Route: 048
     Dates: start: 20100520

REACTIONS (1)
  - GASTRIC ULCER [None]
